FAERS Safety Report 6189317-0 (Version None)
Quarter: 2009Q2

REPORT INFORMATION
  Report Type: 
  Country: None (occurrence: None)
  Receive Date: 20090513
  Receipt Date: 20090430
  Transmission Date: 20091009
  Serious: Yes (Other)
  Sender: FDA-Public Use
  Company Number: GR-GENENTECH-282753

PATIENT
  Age: 34 Year
  Sex: Female

DRUGS (5)
  1. HERCEPTIN [Suspect]
     Indication: BREAST CANCER
     Dosage: 150 MG, UNK
     Route: 065
  2. XELODA [Suspect]
     Indication: OCULAR NEOPLASM
     Dosage: 1500 MG, BID
     Route: 065
  3. LAPATINIB [Suspect]
     Indication: OCULAR NEOPLASM
     Dosage: 1250 MG, QD
     Route: 065
  4. LAPATINIB [Suspect]
     Dosage: 1000 MG, QD
  5. TAXOL [Concomitant]
     Indication: DRUG USE FOR UNKNOWN INDICATION
     Dosage: UNK

REACTIONS (3)
  - EYE HAEMORRHAGE [None]
  - HYPERBILIRUBINAEMIA [None]
  - OCULAR NEOPLASM [None]
